FAERS Safety Report 7217707-3 (Version None)
Quarter: 2010Q4

REPORT INFORMATION
  Report Type: 
  Country: None (occurrence: None)
  Receive Date: 20101230
  Receipt Date: 20101217
  Transmission Date: 20110411
  Serious: Yes (Hospitalization)
  Sender: FDA-Public Use
  Company Number: 784799

PATIENT
  Age: 20 Year
  Sex: Female
  Weight: 60 kg

DRUGS (26)
  1. DACARBAZINE [Suspect]
     Indication: NON-HODGKIN'S LYMPHOMA
  2. FENTANYL CITRATE [Suspect]
     Indication: ANALGESIC THERAPY
     Dosage: SEE IMAGE
     Route: 041
  3. MEROPENEM [Suspect]
     Indication: PNEUMONIA
  4. MEROPENEM [Suspect]
     Indication: PNEUMONIA KLEBSIELLA
  5. MIDAZOLAM [Suspect]
     Indication: SEDATION
     Dosage: 10 MG/H, INTRAVENOUS DRIP
     Route: 041
  6. PIPERACILLIN AND TAZOBACTAM [Suspect]
     Indication: PNEUMONIA
  7. PIPERACILLIN AND TAZOBACTAM [Suspect]
     Indication: PNEUMONIA KLEBSIELLA
  8. PROPOFOL [Suspect]
     Indication: SEDATION
     Dosage: SEE IMAGE
     Route: 041
  9. VINCRISTINE SULFATE [Suspect]
     Indication: NON-HODGKIN'S LYMPHOMA
  10. ENOXAPARIN SODIUM [Suspect]
  11. DOXORUBICIN [Suspect]
     Indication: NON-HODGKIN'S LYMPHOMA
  12. CYCLOPHOSPHAMIDE [Suspect]
     Indication: NON-HODGKIN'S LYMPHOMA
  13. VINLBLASTINE [Suspect]
     Indication: NON-HODGKIN'S LYMPHOMA
  14. LINEZOLID [Suspect]
     Indication: PNEUMONIA
  15. LINEZOLID [Suspect]
     Indication: PNEUMONIA KLEBSIELLA
  16. LINEZOLID [Suspect]
     Indication: PNEUMONIA
  17. LINEZOLID [Suspect]
     Indication: PNEUMONIA KLEBSIELLA
  18. LINEZOLID [Suspect]
     Indication: PNEUMONIA
  19. LINEZOLID [Suspect]
     Indication: PNEUMONIA KLEBSIELLA
  20. LINEZOLID [Suspect]
     Indication: PNEUMONIA
  21. LINEZOLID [Suspect]
     Indication: PNEUMONIA KLEBSIELLA
  22. LINEZOLID [Suspect]
     Indication: PNEUMONIA
  23. LINEZOLID [Suspect]
     Indication: PNEUMONIA KLEBSIELLA
  24. LINEZOLID [Suspect]
     Indication: PNEUMONIA
  25. LINEZOLID [Suspect]
     Indication: PNEUMONIA KLEBSIELLA
  26. AMPHOTERICIN B [Suspect]
     Indication: CANDIDIASIS

REACTIONS (16)
  - AGITATION [None]
  - BLOOD TRIGLYCERIDES INCREASED [None]
  - CANDIDIASIS [None]
  - DRUG EXPOSURE DURING PREGNANCY [None]
  - DRUG TOXICITY [None]
  - FOETAL GROWTH RESTRICTION [None]
  - HYPERTENSION [None]
  - INTRA-UTERINE DEATH [None]
  - KLEBSIELLA INFECTION [None]
  - OBSTRUCTIVE AIRWAYS DISORDER [None]
  - OLIGOHYDRAMNIOS [None]
  - PNEUMONIA [None]
  - PREGNANCY [None]
  - RESPIRATORY DISTRESS [None]
  - STAPHYLOCOCCAL INFECTION [None]
  - TACHYCARDIA [None]
